FAERS Safety Report 23058739 (Version 1)
Quarter: 2023Q4

REPORT INFORMATION
  Report Type: Report from Study
  Country: US (occurrence: US)
  Receive Date: 20231012
  Receipt Date: 20231012
  Transmission Date: 20240110
  Serious: Yes (Hospitalization)
  Sender: FDA-Public Use
  Company Number: US-002147023-NVSC2023US038422

PATIENT
  Age: 61 Year
  Sex: Female
  Weight: 81 kg

DRUGS (13)
  1. KISQALI [Suspect]
     Active Substance: RIBOCICLIB
     Indication: Ovarian cancer
     Dosage: 600 MG (DAILY)
     Route: 048
     Dates: start: 20221214, end: 20230213
  2. KISQALI [Suspect]
     Active Substance: RIBOCICLIB
     Dosage: 200 MG, QD FOR 21 DAYS
     Route: 048
     Dates: start: 20230907, end: 20230907
  3. FEMARA [Suspect]
     Active Substance: LETROZOLE
     Indication: Ovarian cancer
     Dosage: 2.5 MG (DAILY)
     Route: 048
     Dates: start: 20221214, end: 20230213
  4. FEMARA [Suspect]
     Active Substance: LETROZOLE
     Dosage: 2.5 UNK
     Route: 048
     Dates: end: 20230911
  5. FENTANYL [Concomitant]
     Active Substance: FENTANYL
     Indication: Premedication
     Dosage: 50 (UNIT NOT REPORTED) ONCE
     Route: 030
     Dates: start: 20230214, end: 20230214
  6. MIDAZOLAM [Concomitant]
     Active Substance: MIDAZOLAM
     Indication: Product used for unknown indication
     Dosage: 1 MG (ONCE)
     Route: 065
     Dates: start: 20230214, end: 20230214
  7. VITAMINS [Concomitant]
     Active Substance: VITAMINS
     Indication: Product used for unknown indication
     Dosage: UNK
     Route: 065
     Dates: start: 20210824
  8. AMLODIPINE [Concomitant]
     Active Substance: AMLODIPINE BESYLATE
     Indication: Hypertension
     Dosage: 10 MG, ONCE DAILY
     Route: 048
     Dates: start: 20211027
  9. ACETAMINOPHEN\HYDROCODONE [Concomitant]
     Active Substance: ACETAMINOPHEN\HYDROCODONE
     Indication: Pain
     Dosage: 5/325  MG, PRN
     Route: 048
     Dates: start: 20230216, end: 20230216
  10. METOPROLOL SUCCINATE [Concomitant]
     Active Substance: METOPROLOL SUCCINATE
     Indication: Hypertension
     Dosage: 25 MG, ONCE DAILY
     Route: 048
     Dates: start: 20211216
  11. ACETAMINOPHEN [Concomitant]
     Active Substance: ACETAMINOPHEN
     Indication: Pain
     Dosage: UNK
     Route: 065
     Dates: start: 20220531
  12. HYDROXYZINE HYDROCHLORIDE [Concomitant]
     Active Substance: HYDROXYZINE HYDROCHLORIDE
     Indication: Anxiety
     Dosage: 25 MG, PRN
     Route: 048
     Dates: start: 20230219
  13. HYDROXYZINE HYDROCHLORIDE [Concomitant]
     Active Substance: HYDROXYZINE HYDROCHLORIDE
     Indication: Restlessness

REACTIONS (5)
  - Pyelonephritis [Recovering/Resolving]
  - Urinary tract infection [Recovered/Resolved]
  - Hyperglycaemia [Recovered/Resolved]
  - Bacteraemia [Recovered/Resolved]
  - Acute kidney injury [Recovering/Resolving]

NARRATIVE: CASE EVENT DATE: 20230214
